FAERS Safety Report 13488948 (Version 5)
Quarter: 2017Q3

REPORT INFORMATION
  Report Type: Report from Study
  Country: JP (occurrence: JP)
  Receive Date: 20170427
  Receipt Date: 20170821
  Transmission Date: 20171127
  Serious: Yes (Other)
  Sender: FDA-Public Use
  Company Number: JP-PFIZER INC-2016297610

PATIENT
  Age: 66 Year
  Sex: Female

DRUGS (5)
  1. XELJANZ [Suspect]
     Active Substance: TOFACITINIB CITRATE
     Dosage: 5 MG, 1X/DAY
     Route: 048
     Dates: start: 20160615, end: 20160824
  2. XELJANZ [Suspect]
     Active Substance: TOFACITINIB CITRATE
     Dosage: 5 MG, 1X/DAY
     Route: 048
     Dates: start: 20160906, end: 20170123
  3. XELJANZ [Suspect]
     Active Substance: TOFACITINIB CITRATE
     Indication: RHEUMATOID ARTHRITIS
     Dosage: 5 MG, 1X/DAY
     Route: 048
     Dates: start: 20160415, end: 20160606
  4. ALLOPURINOL. [Concomitant]
     Active Substance: ALLOPURINOL
     Dosage: UNK
     Route: 048
  5. SALAZOSULFAPYRIDINE [Concomitant]
     Active Substance: SULFASALAZINE
     Dosage: 1000 MG, DAILY
     Route: 048

REACTIONS (2)
  - Renal impairment [Recovering/Resolving]
  - Disease recurrence [Recovering/Resolving]

NARRATIVE: CASE EVENT DATE: 20160725
